FAERS Safety Report 9326028 (Version 1)
Quarter: 2013Q2

REPORT INFORMATION
  Report Type: Spontaneous
  Country: FR (occurrence: FR)
  Receive Date: 20130604
  Receipt Date: 20130604
  Transmission Date: 20140414
  Serious: Yes (Hospitalization)
  Sender: FDA-Public Use
  Company Number: FR-PFIZER INC-2013162621

PATIENT
  Age: 84 Year
  Sex: Male

DRUGS (16)
  1. TAHOR [Suspect]
     Dosage: 20 MG, 1X/DAY
     Route: 048
  2. AZITHROMYCIN [Suspect]
     Indication: BRONCHITIS
     Dosage: UNK
     Route: 048
     Dates: start: 20130104, end: 20130109
  3. AUGMENTIN [Suspect]
     Indication: BRONCHITIS
     Dosage: 1 G, 3X/DAY
     Route: 048
     Dates: start: 20130111, end: 20130121
  4. PLAVIX [Suspect]
     Dosage: 1 DF, 1X/DAY
     Route: 048
     Dates: start: 20130111, end: 20130121
  5. ISOPTIN [Suspect]
     Dosage: 40 MG, 3X/DAY
     Route: 048
  6. RENITEC [Suspect]
     Indication: HYPERTENSION
     Dosage: 5 MG, 1X/DAY
     Route: 048
     Dates: start: 20121112
  7. ZYRTEC [Suspect]
     Dosage: 10 MG, 1X/DAY
     Route: 048
  8. VENTOLINE [Concomitant]
  9. FORADIL [Concomitant]
  10. BECOTIDE [Concomitant]
  11. EUPHYLLINE [Concomitant]
  12. PREDNISONE [Concomitant]
  13. KARDEGIC [Concomitant]
     Dosage: UNK
     Dates: end: 20130111
  14. RHINOCORT [Concomitant]
  15. INEXIUM [Concomitant]
  16. GAVISCON [Concomitant]

REACTIONS (4)
  - Drug-induced liver injury [Recovered/Resolved]
  - Hepatocellular injury [Recovered/Resolved]
  - Cholestasis [Recovered/Resolved]
  - Jaundice [Recovered/Resolved]
